FAERS Safety Report 5799835-2 (Version None)
Quarter: 2008Q3

REPORT INFORMATION
  Report Type: 
  Country: None (occurrence: None)
  Receive Date: 20080702
  Receipt Date: 20080702
  Transmission Date: 20090109
  Serious: Yes (Other)
  Sender: FDA-Public Use
  Company Number: None

PATIENT
  Sex: Female

DRUGS (4)
  1. DIGITEK 0.125MG MYLAN/BERTEK [Suspect]
     Dosage: 1 TABLET ORALLY DAILY
     Route: 048
     Dates: start: 20080101
  2. DILTIAZEM [Concomitant]
  3. PREVACID [Concomitant]
  4. RANITIDINE HCL [Concomitant]

REACTIONS (3)
  - PHARMACEUTICAL PRODUCT COMPLAINT [None]
  - THERAPEUTIC AGENT TOXICITY [None]
  - VISUAL IMPAIRMENT [None]
